FAERS Safety Report 17488688 (Version 2)
Quarter: 2020Q1

REPORT INFORMATION
  Report Type: Spontaneous
  Country: IN (occurrence: IT)
  Receive Date: 20200303
  Receipt Date: 20200319
  Transmission Date: 20200409
  Serious: Yes (Other)
  Sender: FDA-Public Use
  Company Number: IT-ELI_LILLY_AND_COMPANY-IT202002009959

PATIENT
  Age: 58 Year
  Sex: Male

DRUGS (2)
  1. DOCETAXEL. [Suspect]
     Active Substance: DOCETAXEL
     Indication: LEIOMYOSARCOMA
     Dosage: COMBINATION OF GEMCITABINE 900 MG/M2 ON DAYS 1 AND 8 AND DOCETAXEL 75 MG/M2 ON DAY 8 EVERY 3 WEEKS
     Route: 065
     Dates: start: 201507
  2. GEMCITABINE HYDROCHLORIDE. [Suspect]
     Active Substance: GEMCITABINE HYDROCHLORIDE
     Indication: LEIOMYOSARCOMA
     Dosage: COMBINATION OF GEMCITABINE 900 MG/M2 ON DAYS 1 AND 8 AND DOCETAXEL 75 MG/M2 ON DAY 8 EVERY 3 WEEKS
     Route: 065
     Dates: start: 201507

REACTIONS (5)
  - Drug intolerance [Recovered/Resolved]
  - Febrile neutropenia [Recovered/Resolved]
  - Thrombocytopenia [Recovered/Resolved]
  - Nausea [Recovered/Resolved]
  - Fatigue [Recovered/Resolved]
